FAERS Safety Report 16001088 (Version 3)
Quarter: 2019Q3

REPORT INFORMATION
  Report Type: Spontaneous
  Country: LT (occurrence: LT)
  Receive Date: 20190225
  Receipt Date: 20190701
  Transmission Date: 20191004
  Serious: Yes (Hospitalization, Disabling, Other)
  Sender: FDA-Public Use
  Company Number: LT-MYLANLABS-2018M1059761

PATIENT
  Age: 4 Year
  Sex: Male

DRUGS (1)
  1. KLACID [Suspect]
     Active Substance: CLARITHROMYCIN
     Indication: PNEUMONIA
     Dosage: STANDARD DOSES

REACTIONS (2)
  - Hypoacusis [Recovering/Resolving]
  - Neuritis [Recovering/Resolving]
